FAERS Safety Report 15261550 (Version 1)
Quarter: 2018Q3

REPORT INFORMATION
  Report Type: Spontaneous
  Country: US (occurrence: US)
  Receive Date: 20180809
  Receipt Date: 20180809
  Transmission Date: 20181010
  Serious: No
  Sender: FDA-Public Use
  Company Number: US-GLAXOSMITHKLINE-US2018137001

PATIENT
  Age: 26 Year
  Sex: Male

DRUGS (2)
  1. DICLOFENAC SODIUM GEL [Suspect]
     Active Substance: DICLOFENAC SODIUM
     Indication: CHEST PAIN
     Dosage: UNK
     Dates: start: 2017
  2. VOLTAREN [Suspect]
     Active Substance: DICLOFENAC SODIUM
     Dosage: UNK
     Route: 048

REACTIONS (2)
  - Drug effective for unapproved indication [Unknown]
  - Chest pain [Unknown]
